FAERS Safety Report 19057089 (Version 4)
Quarter: 2021Q2

REPORT INFORMATION
  Report Type: Report from Study
  Country: FR (occurrence: FR)
  Receive Date: 20210324
  Receipt Date: 20210409
  Transmission Date: 20210717
  Serious: Yes (Hospitalization)
  Sender: FDA-Public Use
  Company Number: FR-EISAI MEDICAL RESEARCH-EC-2021-089972

PATIENT
  Age: 14 Year
  Sex: Female
  Weight: 37.2 kg

DRUGS (6)
  1. LENVATINIB [Suspect]
     Active Substance: LENVATINIB
     Indication: MEDULLOBLASTOMA
     Dosage: (DOSE ADMINISTERED: 18 MG)
     Route: 048
     Dates: start: 20210122, end: 20210217
  2. LEVOTHYROX [Concomitant]
     Active Substance: LEVOTHYROXINE
     Dates: start: 202010, end: 20210309
  3. LENVATINIB [Suspect]
     Active Substance: LENVATINIB
     Dosage: (DOSE ADMINISTERED: 14 MG)
     Route: 048
     Dates: start: 20210312
  4. ATARAX [Concomitant]
     Active Substance: HYDROXYZINE HYDROCHLORIDE
     Dates: start: 20210115
  5. BACTRIM [Concomitant]
     Active Substance: SULFAMETHOXAZOLE\TRIMETHOPRIM
     Dates: start: 20201231
  6. LENVATINIB [Suspect]
     Active Substance: LENVATINIB
     Dosage: (DOSE ADMINISTERED: 14 MG)
     Route: 048
     Dates: start: 20210225, end: 20210310

REACTIONS (1)
  - Hypertension [Recovered/Resolved]

NARRATIVE: CASE EVENT DATE: 20210312
